FAERS Safety Report 16653525 (Version 5)
Quarter: 2024Q1

REPORT INFORMATION
  Report Type: Spontaneous
  Country: US (occurrence: US)
  Receive Date: 20190731
  Receipt Date: 20240304
  Transmission Date: 20240410
  Serious: Yes (Hospitalization, Other)
  Sender: FDA-Public Use
  Company Number: US-GILEAD-2019-0420288

PATIENT
  Age: 32 Year
  Sex: Male
  Weight: 60.317 kg

DRUGS (41)
  1. TRUVADA [Suspect]
     Active Substance: EMTRICITABINE\TENOFOVIR DISOPROXIL FUMARATE
     Indication: HIV infection
     Dosage: UNK
     Route: 048
     Dates: start: 201008, end: 201802
  2. GENVOYA [Concomitant]
     Active Substance: COBICISTAT\ELVITEGRAVIR\EMTRICITABINE\TENOFOVIR ALAFENAMIDE FUMARATE
  3. ADDERALL [Concomitant]
     Active Substance: AMPHETAMINE ASPARTATE\AMPHETAMINE SULFATE\DEXTROAMPHETAMINE SACCHARATE\DEXTROAMPHETAMINE SULFATE
  4. CLONAZEPAM [Concomitant]
     Active Substance: CLONAZEPAM
  5. DOLUTEGRAVIR SODIUM\RILPIVIRINE HYDROCHLORIDE [Concomitant]
     Active Substance: DOLUTEGRAVIR SODIUM\RILPIVIRINE HYDROCHLORIDE
  6. ISENTRESS [Concomitant]
     Active Substance: RALTEGRAVIR POTASSIUM
  7. LIBRIUM [Concomitant]
     Active Substance: CHLORDIAZEPOXIDE HYDROCHLORIDE
  8. CEFTRIAXONE [Concomitant]
     Active Substance: CEFTRIAXONE\CEFTRIAXONE SODIUM
  9. AZITHROMYCIN [Concomitant]
     Active Substance: AZITHROMYCIN
  10. INFLUENZA VIRUS VACCINE [Concomitant]
     Active Substance: INFLUENZA VIRUS VACCINE
  11. MENINGOCOCCAL POLYSACCHARIDE VACCINE A NOS [Concomitant]
     Active Substance: MENINGOCOCCAL POLYSACCHARIDE VACCINE A\NEISSERIA MENINGITIDIS GROUP A CAPSULAR POLYSACCHARIDE ANTIGE
  12. HAVRIX [Concomitant]
     Active Substance: HEPATITIS A VIRUS STRAIN HM175 ANTIGEN (FORMALDEHYDE INACTIVATED)
  13. PNEUMOVAX 23 [Concomitant]
     Active Substance: PNEUMOCOCCAL VACCINE, POLYVALENT 23
  14. HEPATITIS A [Concomitant]
  15. HEPATITIS B VIRUS VACCINE [Concomitant]
     Active Substance: HEPATITIS B VIRUS VACCINE
  16. MIRTAZAPINE [Concomitant]
     Active Substance: MIRTAZAPINE
  17. PREZCOBIX [Concomitant]
     Active Substance: COBICISTAT\DARUNAVIR ETHANOLATE
  18. RISPERIDONE [Concomitant]
     Active Substance: RISPERIDONE
  19. TRAZODONE [Concomitant]
     Active Substance: TRAZODONE HYDROCHLORIDE
  20. COSYNTROPIN [Concomitant]
     Active Substance: COSYNTROPIN
  21. NORCO [Concomitant]
     Active Substance: ACETAMINOPHEN\HYDROCODONE BITARTRATE
  22. PROCRIT [Concomitant]
     Active Substance: ERYTHROPOIETIN
  23. VITAMINS [Concomitant]
     Active Substance: VITAMINS
  24. HALOPERIDOL [Concomitant]
     Active Substance: HALOPERIDOL
  25. DIPHENHYDRAMINE HYDROCHLORIDE [Concomitant]
     Active Substance: DIPHENHYDRAMINE HYDROCHLORIDE
  26. TIVICAY [Concomitant]
     Active Substance: DOLUTEGRAVIR SODIUM
  27. PEPCID [Concomitant]
     Active Substance: FAMOTIDINE
  28. EDURANT [Concomitant]
     Active Substance: RILPIVIRINE HYDROCHLORIDE
  29. ATIVAN [Concomitant]
     Active Substance: LORAZEPAM
  30. ZOFRAN [Concomitant]
     Active Substance: ONDANSETRON HYDROCHLORIDE
  31. ACETAMINOPHEN [Concomitant]
     Active Substance: ACETAMINOPHEN
  32. IBUPROFEN [Concomitant]
     Active Substance: IBUPROFEN
  33. ONDANSETRON [Concomitant]
     Active Substance: ONDANSETRON
  34. FOLIC ACID [Concomitant]
     Active Substance: FOLIC ACID
  35. AMBIEN [Concomitant]
     Active Substance: ZOLPIDEM TARTRATE
  36. EPOETIN ALFA [Concomitant]
     Active Substance: ERYTHROPOIETIN
  37. MAGNESIUM SULFATE [Concomitant]
     Active Substance: MAGNESIUM SULFATE\MAGNESIUM SULFATE HEPTAHYDRATE
  38. MORPHINE [Concomitant]
     Active Substance: MORPHINE
  39. PANTOPRAZOLE [Concomitant]
     Active Substance: PANTOPRAZOLE
  40. POTASSIUM CITRATE [Concomitant]
     Active Substance: POTASSIUM CITRATE
  41. THIAMINE [Concomitant]
     Active Substance: THIAMINE

REACTIONS (8)
  - Chronic kidney disease [Not Recovered/Not Resolved]
  - Renal failure [Not Recovered/Not Resolved]
  - Emotional distress [Unknown]
  - Anxiety [Unknown]
  - Anhedonia [Unknown]
  - Economic problem [Unknown]
  - Pain [Unknown]
  - Partner stress [Unknown]

NARRATIVE: CASE EVENT DATE: 20140601
